FAERS Safety Report 18133976 (Version 1)
Quarter: 2020Q3

REPORT INFORMATION
  Report Type: Spontaneous
  Country: US (occurrence: US)
  Receive Date: 20200811
  Receipt Date: 20200811
  Transmission Date: 20201103
  Serious: Yes (Other)
  Sender: FDA-Public Use
  Company Number: US-BAYER-2020-166200

PATIENT

DRUGS (1)
  1. CLARITIN?D 12 HOUR [Suspect]
     Active Substance: LORATADINE\PSEUDOEPHEDRINE SULFATE
     Indication: VERTIGO
     Dosage: UNK
     Route: 048

REACTIONS (2)
  - Foreign body in throat [Unknown]
  - Product use in unapproved indication [Unknown]
